FAERS Safety Report 9784503 (Version 2)
Quarter: 2013Q4

REPORT INFORMATION
  Report Type: Spontaneous
  Country: US (occurrence: US)
  Receive Date: 20131226
  Receipt Date: 20131226
  Transmission Date: 20140711
  Serious: Yes (Hospitalization)
  Sender: FDA-Public Use
  Company Number: US-UCBSA-102349

PATIENT
  Age: 64 Year
  Sex: Male
  Weight: 83.91 kg

DRUGS (10)
  1. CIMZIA [Suspect]
     Indication: CROHN^S DISEASE
     Route: 058
     Dates: start: 20110811, end: 201306
  2. CIMZIA [Suspect]
     Indication: CROHN^S DISEASE
     Dosage: 0, 2 AND 4 WEEKS
     Route: 058
     Dates: start: 201309, end: 201312
  3. MERCAPTOPURINE [Concomitant]
     Indication: IMMUNOSUPPRESSION
     Route: 048
  4. SYNTHROID [Concomitant]
     Indication: THYROID DISORDER
     Route: 048
  5. AMLODIPINE [Concomitant]
     Indication: BLOOD PRESSURE
     Route: 048
  6. LOSARTINE [Concomitant]
     Indication: BLOOD PRESSURE
     Route: 048
  7. VITAMIN B12 [Concomitant]
     Indication: VITAMIN SUPPLEMENTATION
     Dosage: ONCE IN 2 WEEKS
     Route: 048
  8. MULTIVITAMINS [Concomitant]
     Indication: VITAMIN SUPPLEMENTATION
     Dosage: ONCE DAILY
     Route: 048
  9. PROBIOTIC [Concomitant]
     Dosage: ONCE DIALY
     Route: 048
  10. VICODIN [Concomitant]
     Indication: PAIN
     Dosage: PRN
     Route: 048

REACTIONS (7)
  - Hiatus hernia [Recovering/Resolving]
  - Blood pressure increased [Recovering/Resolving]
  - Eye haemorrhage [Recovered/Resolved]
  - Venous haemorrhage [Recovered/Resolved]
  - Contusion [Recovered/Resolved]
  - Cough [Recovered/Resolved]
  - Anxiety [Recovered/Resolved]
